FAERS Safety Report 8624983-9 (Version None)
Quarter: 2012Q3

REPORT INFORMATION
  Report Type: 
  Country: None (occurrence: None)
  Receive Date: 20120822
  Receipt Date: 20120822
  Transmission Date: 20120928
  Serious: Yes (Hospitalization)
  Sender: FDA-Public Use
  Company Number: None

PATIENT
  Age: 24 Year
  Sex: Male
  Weight: 125.9 kg

DRUGS (1)
  1. PIPERACILLIN AND TAZOBACTAM [Suspect]
     Indication: APPENDICITIS
     Dosage: 3.375 GM
     Dates: start: 20120718, end: 20120722

REACTIONS (6)
  - BLOOD BILIRUBIN INCREASED [None]
  - ALANINE AMINOTRANSFERASE INCREASED [None]
  - SEPSIS [None]
  - HEPATITIS VIRAL [None]
  - BILE DUCT STONE [None]
  - ASPARTATE AMINOTRANSFERASE INCREASED [None]
